FAERS Safety Report 4270989-2 (Version None)
Quarter: 2004Q1

REPORT INFORMATION
  Report Type: 
  Country: None (occurrence: None)
  Receive Date: 20040114
  Receipt Date: 20040106
  Transmission Date: 20041129
  Serious: Yes (Hospitalization)
  Sender: FDA-Public Use
  Company Number: WAES 0401USA00648

PATIENT

DRUGS (4)
  1. PRAVASTATIN SODIUM [Suspect]
     Dates: start: 19940101, end: 19940101
  2. PRAVASTATIN SODIUM [Suspect]
     Dates: start: 19940101, end: 19940101
  3. ZOCOR [Suspect]
     Route: 048
     Dates: end: 19940101
  4. ZOCOR [Suspect]
     Route: 048
     Dates: start: 19940101

REACTIONS (2)
  - ABDOMINAL PAIN [None]
  - MYOCARDIAL INFARCTION [None]
